FAERS Safety Report 21571693 (Version 1)
Quarter: 2022Q4

REPORT INFORMATION
  Report Type: Spontaneous
  Country: IL (occurrence: IL)
  Receive Date: 20221109
  Receipt Date: 20221109
  Transmission Date: 20230113
  Serious: Yes (Other)
  Sender: FDA-Public Use
  Company Number: IL-TEVA-2022-IL-2823387

PATIENT
  Age: 82 Year
  Sex: Male

DRUGS (1)
  1. DIAZEPAM [Suspect]
     Active Substance: DIAZEPAM
     Indication: Product used for unknown indication
     Dosage: FORM STRENGTH: 10MILLIGRAM AMPULES, DOSAGE: 2
     Route: 065
     Dates: start: 20221013

REACTIONS (9)
  - Dyspnoea [Unknown]
  - Insomnia [Unknown]
  - Feeling abnormal [Unknown]
  - Fall [Unknown]
  - Impaired work ability [Unknown]
  - Limb injury [Unknown]
  - Movement disorder [Unknown]
  - Condition aggravated [Unknown]
  - Wrong product administered [Unknown]
